FAERS Safety Report 10155481 (Version 2)
Quarter: 2014Q2

REPORT INFORMATION
  Report Type: Report from Study
  Country: JP (occurrence: JP)
  Receive Date: 20140506
  Receipt Date: 20140506
  Transmission Date: 20141212
  Serious: Yes (Hospitalization)
  Sender: FDA-Public Use
  Company Number: JP-009507513-1403JPN002248

PATIENT
  Age: 66 Year
  Sex: Male
  Weight: 48 kg

DRUGS (8)
  1. CANCIDAS FOR INTRAVENOUS DRIP INFUSION 70MG [Suspect]
     Indication: BRONCHOPULMONARY ASPERGILLOSIS
     Dosage: 70 MG, QD, IV DRIP
     Route: 041
     Dates: start: 20131207, end: 20131207
  2. CANCIDAS FOR INTRAVENOUS DRIP INFUSION 50MG [Suspect]
     Indication: BRONCHOPULMONARY ASPERGILLOSIS
     Dosage: 50 MG, QD
     Route: 041
     Dates: start: 20131208, end: 20131213
  3. ZOSYN [Concomitant]
     Dosage: 4.5 G, TID
     Route: 042
     Dates: start: 20131208
  4. VANCOMYCIN [Concomitant]
     Dosage: 0.5 G, BID
     Route: 042
     Dates: start: 20131209, end: 20131210
  5. SOLDEM 3A [Concomitant]
     Dosage: 500 ML, TID
     Route: 042
     Dates: start: 20131206, end: 20131216
  6. RABEPRAZOLE SODIUM [Concomitant]
     Dosage: 10 MG, QD
     Route: 048
     Dates: start: 20131206
  7. PREDNISOLONE [Concomitant]
     Dosage: 30 MG, QD
     Route: 048
     Dates: start: 20131206
  8. VALIXA [Concomitant]
     Dosage: 450 MG, BID
     Route: 048
     Dates: start: 20131211, end: 20131220

REACTIONS (6)
  - Staphylococcal sepsis [Recovered/Resolved]
  - Sepsis [Recovering/Resolving]
  - Cytomegalovirus infection [Recovered/Resolved]
  - Aspartate aminotransferase increased [Recovering/Resolving]
  - Alanine aminotransferase increased [Recovering/Resolving]
  - Blood alkaline phosphatase increased [Recovering/Resolving]
